FAERS Safety Report 25805534 (Version 1)
Quarter: 2025Q3

REPORT INFORMATION
  Report Type: Report from Study
  Country: US (occurrence: US)
  Receive Date: 20250916
  Receipt Date: 20250916
  Transmission Date: 20251021
  Serious: Yes (Other)
  Sender: TAKEDA
  Company Number: US-TAKEDA-2024TUS019389

PATIENT
  Sex: Female
  Weight: 106 kg

DRUGS (4)
  1. MARIBAVIR [Interacting]
     Active Substance: MARIBAVIR
     Indication: Cytomegalovirus infection
  2. MARIBAVIR [Interacting]
     Active Substance: MARIBAVIR
     Dosage: UNK UNK, BID
     Dates: start: 20240209
  3. MARIBAVIR [Interacting]
     Active Substance: MARIBAVIR
     Dosage: 400 MILLIGRAM, BID
     Dates: start: 20240330
  4. MARIBAVIR [Interacting]
     Active Substance: MARIBAVIR
     Dosage: UNK UNK, BID
     Dates: end: 20250714

REACTIONS (5)
  - Herpes virus infection [Recovered/Resolved]
  - Drug interaction [Unknown]
  - Product use issue [Unknown]
  - Herpes zoster [Unknown]
  - Oral herpes [Recovered/Resolved]
